FAERS Safety Report 19622837 (Version 3)
Quarter: 2021Q4

REPORT INFORMATION
  Report Type: Spontaneous
  Country: US (occurrence: US)
  Receive Date: 20210728
  Receipt Date: 20211001
  Transmission Date: 20220303
  Serious: No
  Sender: FDA-Public Use
  Company Number: US-VERTEX PHARMACEUTICALS-2021-011168

PATIENT
  Age: 11 Year
  Sex: Male

DRUGS (3)
  1. TRIKAFTA [Suspect]
     Active Substance: ELEXACAFTOR\IVACAFTOR\TEZACAFTOR
     Indication: Cystic fibrosis
     Dosage: 2 TABS (100 MG ELEXACAFTOR/ 50 MG TEZACAFTOR/ 75 MG IVACAFTOR) AM; 1 TAB (150MG IVACAFTOR) PM
     Route: 048
     Dates: start: 20210709
  2. AMOXICILLIN [Concomitant]
     Active Substance: AMOXICILLIN
  3. DOXYCYCLINE [Concomitant]
     Active Substance: DOXYCYCLINE

REACTIONS (10)
  - Malaise [Unknown]
  - Scarlet fever [Unknown]
  - Respiratory syncytial virus infection [Unknown]
  - Forced expiratory volume decreased [Unknown]
  - Pharyngeal erythema [Unknown]
  - Viral rash [Recovering/Resolving]
  - Pyrexia [Recovered/Resolved]
  - Viral infection [Unknown]
  - Pain in extremity [Recovered/Resolved]
  - Rhinorrhoea [Unknown]

NARRATIVE: CASE EVENT DATE: 20210701
